FAERS Safety Report 16766256 (Version 3)
Quarter: 2019Q4

REPORT INFORMATION
  Report Type: Other
  Country: PL (occurrence: PL)
  Receive Date: 20190903
  Receipt Date: 20191023
  Transmission Date: 20200122
  Serious: Yes (Death, Life-Threatening, Hospitalization, Other)
  Sender: FDA-Public Use
  Company Number: PL-MACLEODS PHARMACEUTICALS US LTD-MAC2019022772

PATIENT

DRUGS (21)
  1. NIFUROXAZIDE [Suspect]
     Active Substance: NIFUROXAZIDE
     Indication: DIARRHOEA
  2. LEVOFLOXACIN. [Interacting]
     Active Substance: LEVOFLOXACIN
     Indication: BACTERIAL INFECTION
     Dosage: UNK
     Route: 065
  3. NIFUROXAZIDE [Suspect]
     Active Substance: NIFUROXAZIDE
     Indication: URINARY TRACT INFECTION
  4. OLANZAPINE. [Interacting]
     Active Substance: OLANZAPINE
     Dosage: 10 MILLIGRAM, QD
     Route: 048
  5. ARIPIPRAZOLE TABLET [Interacting]
     Active Substance: ARIPIPRAZOLE
     Indication: BIPOLAR DISORDER
     Dosage: 7.5 MILLIGRAM, QD TABLET
     Route: 048
  6. AMOXICILLIN/CLAVULANATE POTASSIUM [Interacting]
     Active Substance: AMOXICILLIN\CLAVULANATE POTASSIUM
     Indication: URINARY TRACT INFECTION
  7. PANTOPRAZOLE [Suspect]
     Active Substance: PANTOPRAZOLE
     Indication: REFLUX GASTRITIS
  8. LEVOFLOXACIN. [Interacting]
     Active Substance: LEVOFLOXACIN
     Indication: BACTERIAL INFECTION
  9. NIFUROXAZIDE [Suspect]
     Active Substance: NIFUROXAZIDE
     Indication: ABDOMINAL PAIN
  10. CEFUROXIME AXETIL. [Interacting]
     Active Substance: CEFUROXIME AXETIL
     Indication: URINARY TRACT INFECTION
  11. AMOXICILLIN/CLAVULANATE POTASSIUM [Interacting]
     Active Substance: AMOXICILLIN\CLAVULANATE POTASSIUM
     Indication: PRODUCT USED FOR UNKNOWN INDICATION
     Dosage: UNK
     Route: 065
  12. CIPROFLOXACIN. [Interacting]
     Active Substance: CIPROFLOXACIN
     Indication: URINARY TRACT INFECTION
  13. ITOPRIDE [Interacting]
     Active Substance: ITOPRIDE
     Indication: GASTROOESOPHAGEAL REFLUX DISEASE
     Dosage: 50 MILLIGRAM, TID
     Route: 048
  14. CIPROFLOXACIN. [Interacting]
     Active Substance: CIPROFLOXACIN
     Indication: PRODUCT USED FOR UNKNOWN INDICATION
     Dosage: UNK
     Route: 065
  15. ITOPRIDE [Interacting]
     Active Substance: ITOPRIDE
     Dosage: 50 MG, QD
     Route: 048
  16. OLANZAPINE. [Suspect]
     Active Substance: OLANZAPINE
     Indication: BIPOLAR DISORDER
     Dosage: 10 MILLIGRAM, QD
     Route: 048
  17. PANTOPRAZOLE [Suspect]
     Active Substance: PANTOPRAZOLE
     Indication: GASTROOESOPHAGEAL REFLUX DISEASE
     Dosage: 40 MILLIGRAM, QD
     Route: 048
  18. PANTOPRAZOLE [Suspect]
     Active Substance: PANTOPRAZOLE
     Indication: GASTROOESOPHAGEAL REFLUX DISEASE
     Dosage: 10 MILLIGRAM, QD
     Route: 048
  19. NIFUROXAZIDE [Suspect]
     Active Substance: NIFUROXAZIDE
     Indication: PRODUCT USED FOR UNKNOWN INDICATION
     Dosage: UNK
     Route: 065
  20. CEFUROXIME AXETIL. [Interacting]
     Active Substance: CEFUROXIME AXETIL
     Indication: BACTERIAL INFECTION
     Dosage: 50 MILLIGRAM, QD
     Route: 048
  21. SULFAMETHOXAZOLE,TRIMETHOPRIM [Interacting]
     Active Substance: SULFAMETHOXAZOLE\TRIMETHOPRIM
     Indication: BACTERIAL INFECTION
     Dosage: UNK
     Route: 065

REACTIONS (28)
  - Parosmia [Fatal]
  - Dysbiosis [Not Recovered/Not Resolved]
  - Drug interaction [Not Recovered/Not Resolved]
  - Pyrexia [Not Recovered/Not Resolved]
  - Drug ineffective [Unknown]
  - Dyspepsia [Unknown]
  - Parosmia [Unknown]
  - Diarrhoea [Not Recovered/Not Resolved]
  - Dysbiosis [Unknown]
  - Oral discomfort [Unknown]
  - Breath odour [Unknown]
  - Condition aggravated [Not Recovered/Not Resolved]
  - Bacterial test positive [Unknown]
  - Intestinal perforation [Fatal]
  - Bacterial test positive [Fatal]
  - Abdominal pain upper [Not Recovered/Not Resolved]
  - White blood cells urine [Unknown]
  - Pseudomembranous colitis [Not Recovered/Not Resolved]
  - Gastrooesophageal reflux disease [Unknown]
  - Clostridium difficile infection [Fatal]
  - Trimethylaminuria [Not Recovered/Not Resolved]
  - Condition aggravated [Unknown]
  - Peritonitis [Fatal]
  - Megacolon [Fatal]
  - Drug resistance [Unknown]
  - Inhibitory drug interaction [Not Recovered/Not Resolved]
  - Taste disorder [Not Recovered/Not Resolved]
  - Urine odour abnormal [Not Recovered/Not Resolved]
